FAERS Safety Report 9357461 (Version 2)
Quarter: 2013Q2

REPORT INFORMATION
  Report Type: Spontaneous
  Country: IT (occurrence: None)
  Receive Date: 20130617
  Receipt Date: 20130624
  Transmission Date: 20140414
  Serious: Yes (Hospitalization)
  Sender: FDA-Public Use
  Company Number: SYM-2013-04734

PATIENT
  Age: 47 Year
  Sex: Male

DRUGS (2)
  1. MESTINON [Suspect]
     Indication: MYASTHENIC SYNDROME
     Route: 048
     Dates: start: 20020101, end: 20130531
  2. AMIFAMPRIDINE [Suspect]
     Indication: MYASTHENIC SYNDROME
     Route: 048
     Dates: start: 19920101, end: 20130610

REACTIONS (5)
  - Drug interaction [None]
  - Psychomotor hyperactivity [None]
  - Muscle twitching [None]
  - Dysaesthesia [None]
  - Dyspnoea [None]
